FAERS Safety Report 23622473 (Version 2)
Quarter: 2025Q4

REPORT INFORMATION
  Report Type: Spontaneous
  Country: US (occurrence: US)
  Receive Date: 20240312
  Receipt Date: 20251125
  Transmission Date: 20260117
  Serious: No
  Sender: SANOFI AVENTIS
  Company Number: US-SA-SAC20240306000290

PATIENT
  Age: 44 Year
  Sex: Female

DRUGS (1)
  1. DUPIXENT [Suspect]
     Active Substance: DUPILUMAB
     Indication: Dermatitis atopic
     Dosage: 300 MG, QOW
     Route: 058

REACTIONS (3)
  - Dry skin [Unknown]
  - Pruritus [Not Recovered/Not Resolved]
  - Therapeutic product effect decreased [Unknown]
